FAERS Safety Report 15101605 (Version 1)
Quarter: 2018Q3

REPORT INFORMATION
  Report Type: Spontaneous
  Country: US (occurrence: US)
  Receive Date: 20180703
  Receipt Date: 20180703
  Transmission Date: 20181010
  Serious: Yes (Hospitalization, Other)
  Sender: FDA-Public Use
  Company Number: US-AUROBINDO-AUR-APL-2018-032667

PATIENT
  Age: 39 Year
  Sex: Female

DRUGS (4)
  1. DOXYCYCLINE. [Suspect]
     Active Substance: DOXYCYCLINE
     Indication: CEREBRAL MALARIA
     Dosage: UNK
     Route: 042
  2. DOXYCYCLINE. [Suspect]
     Active Substance: DOXYCYCLINE
     Indication: PYREXIA
  3. QUINIDINE [Suspect]
     Active Substance: QUINIDINE
     Indication: CEREBRAL MALARIA
     Dosage: UNK
     Route: 042
  4. QUINIDINE [Suspect]
     Active Substance: QUINIDINE
     Indication: PYREXIA

REACTIONS (7)
  - Thrombocytopenia [Recovered/Resolved]
  - Haemodynamic instability [Recovered/Resolved]
  - Renal failure [Recovered/Resolved]
  - Haemoglobinuria [Recovered/Resolved]
  - Memory impairment [Not Recovered/Not Resolved]
  - Plasmodium falciparum infection [Unknown]
  - Anaemia [Unknown]
